FAERS Safety Report 5551421-5 (Version None)
Quarter: 2007Q4

REPORT INFORMATION
  Report Type: 
  Country: None (occurrence: None)
  Receive Date: 20071129
  Receipt Date: 20070417
  Transmission Date: 20080405
  Serious: Yes (Life-Threatening, Hospitalization)
  Sender: FDA-Public Use
  Company Number: PHEH2007US02467

PATIENT
  Age: 70 Year
  Sex: Female
  Weight: 93.9 kg

DRUGS (13)
  1. LAMISIL [Suspect]
     Indication: NAIL TINEA
     Dosage: 250 MG, QD,
     Dates: start: 20050414, end: 20050427
  2. NEURONTIN [Suspect]
     Dosage: ONCE/SINGLE, ORAL
     Route: 048
  3. ASPIRIN [Concomitant]
  4. NAPROXEN [Concomitant]
  5. LIPITOR [Concomitant]
  6. GLUCOVANCE                (GLIBENCLAMIDE, METFORMIN HYDROCHLORIDE) TAB [Concomitant]
  7. ALTACE [Concomitant]
  8. PRILOSEC [Concomitant]
  9. MULTIVITAMINS (ASCORBIC ACID, ERGOCALCIFEROL, FOLIC ACID, NICOTINAMIDE [Concomitant]
  10. METAMUCIL (ISPAGHULA, PLANTAGO OVATA) WAFER [Concomitant]
  11. ESTRACE [Concomitant]
  12. METFORMIN HCL [Concomitant]
  13. LASIX [Concomitant]

REACTIONS (17)
  - ACUTE GENERALISED EXANTHEMATOUS PUSTULOSIS [None]
  - BLISTER [None]
  - BURNING SENSATION [None]
  - ECZEMA [None]
  - ENTEROCOCCAL INFECTION [None]
  - ESCHERICHIA INFECTION [None]
  - HYPERSENSITIVITY [None]
  - LIP SWELLING [None]
  - RASH [None]
  - RASH ERYTHEMATOUS [None]
  - RASH PRURITIC [None]
  - SKIN DISORDER [None]
  - STEVENS-JOHNSON SYNDROME [None]
  - SUBCORNEAL PUSTULAR DERMATOSIS [None]
  - TOXIC EPIDERMAL NECROLYSIS [None]
  - WHITE BLOOD CELL COUNT INCREASED [None]
  - WOUND DEBRIDEMENT [None]
